FAERS Safety Report 9317266 (Version 1)
Quarter: 2013Q2

REPORT INFORMATION
  Report Type: Spontaneous
  Country: US (occurrence: None)
  Receive Date: 20130524
  Receipt Date: 20130524
  Transmission Date: 20140414
  Serious: Yes (Death)
  Sender: FDA-Public Use
  Company Number: 2013-191

PATIENT
  Age: 69 Year
  Sex: Male

DRUGS (1)
  1. FAZACLO [Suspect]
     Indication: SCHIZOPHRENIA
     Dosage: 100-200 MG, QD, ORAL
     Route: 048
     Dates: start: 20090325, end: 20130322

REACTIONS (1)
  - Pneumonia aspiration [None]
